FAERS Safety Report 10083521 (Version 1)
Quarter: 2014Q2

REPORT INFORMATION
  Report Type: Spontaneous
  Country: US (occurrence: None)
  Receive Date: 20140416
  Receipt Date: 20140416
  Transmission Date: 20141212
  Serious: No
  Sender: FDA-Public Use
  Company Number: None

PATIENT
  Age: 25 Year
  Sex: Female
  Weight: 55.79 kg

DRUGS (1)
  1. MIRENA [Suspect]
     Indication: MIGRAINE WITH AURA
     Dosage: IUD, ONE TIME IN 5 YEAR, VAGINAL
     Route: 067

REACTIONS (1)
  - Procedural pain [None]
